FAERS Safety Report 15887503 (Version 4)
Quarter: 2019Q2

REPORT INFORMATION
  Report Type: Spontaneous
  Country: BG (occurrence: BG)
  Receive Date: 20190130
  Receipt Date: 20190617
  Transmission Date: 20190711
  Serious: Yes (Other)
  Sender: FDA-Public Use
  Company Number: BG-ACCORD-103489

PATIENT
  Age: 50 Year
  Sex: Male

DRUGS (8)
  1. ABIRATERONE. [Suspect]
     Active Substance: ABIRATERONE ACETATE
     Indication: PROSTATE CANCER
     Dosage: 1000 MG, DAILY
     Route: 048
     Dates: start: 201705
  2. CABAZITAXEL [Suspect]
     Active Substance: CABAZITAXEL
     Indication: PROSTATE CANCER
     Dosage: 12 COURSES
     Route: 065
     Dates: start: 20160519, end: 20170126
  3. RADIUM 223 [Suspect]
     Active Substance: RADIUM RA-223 DICHLORIDE
     Indication: PROSTATE CANCER
     Dosage: 17.6 MBQ, TOTAL, (IN 4 COURSES, AN AVERAGE OF 4.4 MBQ PER APPLICATION)
     Route: 042
     Dates: start: 20170418, end: 20170722
  4. LEUPRORELIN/LEUPRORELIN ACETATE [Suspect]
     Active Substance: LEUPROLIDE ACETATE
     Indication: PROSTATE CANCER
     Dosage: 4 APPLICATIONS
     Dates: start: 20141029, end: 20141029
  5. DOCETAXEL. [Suspect]
     Active Substance: DOCETAXEL
     Indication: PROSTATE CANCER
     Dosage: 5 COURSES: BECAUSE OF THE RISE IN PSA, CHEMOTHERAPY HAD BEGUN,DOSAGE FORM: UNSPECIFIED
  6. DENOSUMAB [Suspect]
     Active Substance: DENOSUMAB
     Indication: PROSTATE CANCER
     Dosage: DOSAGE FORM: UNSPECIFIED
     Dates: start: 20141029, end: 20141029
  7. ENZALUTAMIDE [Suspect]
     Active Substance: ENZALUTAMIDE
     Indication: PROSTATE CANCER
     Dosage: (AFTER INEFFECTIVE TREATMENT NEW GENERATION IS INCLUDED ANTIANDROGEN)
  8. BICALUTAMIDE. [Suspect]
     Active Substance: BICALUTAMIDE
     Indication: PROSTATE CANCER
     Route: 065
     Dates: start: 20141029, end: 20141029

REACTIONS (10)
  - Prostate cancer [Unknown]
  - Malignant neoplasm progression [Unknown]
  - Metastases to soft tissue [Unknown]
  - Drug ineffective [Unknown]
  - Fatigue [Unknown]
  - Prostate cancer recurrent [Unknown]
  - Metastases to lymph nodes [Unknown]
  - Prostatic specific antigen increased [Unknown]
  - Drug resistance [Unknown]
  - Metastases to lung [Unknown]

NARRATIVE: CASE EVENT DATE: 201706
